FAERS Safety Report 6030610-X (Version None)
Quarter: 2009Q1

REPORT INFORMATION
  Report Type: 
  Country: None (occurrence: None)
  Receive Date: 20090106
  Receipt Date: 20090106
  Transmission Date: 20090719
  Serious: Yes (Hospitalization)
  Sender: FDA-Public Use
  Company Number: None

PATIENT
  Age: 57 Year
  Sex: Male
  Weight: 80 kg

DRUGS (1)
  1. INFLIXIMAB [Suspect]
     Indication: PSORIASIS
     Dosage: 450 MG EVERY 8 WEEKS IV DRIP
     Route: 041
     Dates: start: 20051129, end: 20081028

REACTIONS (3)
  - NASAL CAVITY MASS [None]
  - NASAL CONGESTION [None]
  - SNORING [None]
